FAERS Safety Report 11780905 (Version 1)
Quarter: 2015Q4

REPORT INFORMATION
  Report Type: Report from Study
  Country: BR (occurrence: BR)
  Receive Date: 20151126
  Receipt Date: 20151126
  Transmission Date: 20160305
  Serious: Yes (Other)
  Sender: FDA-Public Use
  Company Number: BR-ROCHE-767002

PATIENT
  Age: 67 Year
  Sex: Female
  Weight: 76 kg

DRUGS (15)
  1. MABTHERA [Suspect]
     Active Substance: RITUXIMAB
     Route: 042
  2. MABTHERA [Suspect]
     Active Substance: RITUXIMAB
     Indication: RHEUMATOID ARTHRITIS
     Route: 042
  3. MABTHERA [Suspect]
     Active Substance: RITUXIMAB
     Route: 042
  4. MABTHERA [Suspect]
     Active Substance: RITUXIMAB
     Route: 042
  5. LIPITOR [Concomitant]
     Active Substance: ATORVASTATIN CALCIUM
     Route: 065
  6. LIVIAL [Concomitant]
     Active Substance: TIBOLONE
  7. CYMBALTA [Concomitant]
     Active Substance: DULOXETINE HYDROCHLORIDE
  8. DIOVAN [Concomitant]
     Active Substance: VALSARTAN
  9. MABTHERA [Suspect]
     Active Substance: RITUXIMAB
     Route: 042
  10. CELEBRA [Concomitant]
     Active Substance: CELECOXIB
     Indication: RHEUMATOID ARTHRITIS
  11. MABTHERA [Suspect]
     Active Substance: RITUXIMAB
     Route: 042
  12. ATENOLOL. [Concomitant]
     Active Substance: ATENOLOL
     Indication: ANGINA PECTORIS
     Dosage: DOSE REPORTED AS 20 OR 25 MG
     Route: 065
  13. GLIFAGE [Concomitant]
     Active Substance: METFORMIN HYDROCHLORIDE
     Indication: DIABETES MELLITUS
  14. MABTHERA [Suspect]
     Active Substance: RITUXIMAB
     Route: 042
  15. MABTHERA [Suspect]
     Active Substance: RITUXIMAB
     Route: 042

REACTIONS (14)
  - Pain [Not Recovered/Not Resolved]
  - Swelling [Recovered/Resolved]
  - Limb operation [Not Recovered/Not Resolved]
  - Peripheral swelling [Unknown]
  - Headache [Not Recovered/Not Resolved]
  - Pain in extremity [Not Recovered/Not Resolved]
  - Drug ineffective [Unknown]
  - Cartilage atrophy [Recovered/Resolved]
  - Tooth disorder [Recovering/Resolving]
  - Insomnia [Not Recovered/Not Resolved]
  - Osteoarthritis [Unknown]
  - Pain [Recovering/Resolving]
  - Malaise [Not Recovered/Not Resolved]
  - Arthralgia [Not Recovered/Not Resolved]

NARRATIVE: CASE EVENT DATE: 201502
